FAERS Safety Report 4398723-6 (Version None)
Quarter: 2004Q3

REPORT INFORMATION
  Report Type: 
  Country: None (occurrence: None)
  Receive Date: 20040715
  Receipt Date: 20040611
  Transmission Date: 20050211
  Serious: Yes (Hospitalization, Disabling, Other)
  Sender: FDA-Public Use
  Company Number: PHHO2004CA08488

PATIENT
  Age: 64 Year
  Sex: Female

DRUGS (20)
  1. CLOZARIL [Suspect]
     Indication: SCHIZOPHRENIA
     Dosage: 100 - 300 MG / DAY
     Route: 048
     Dates: start: 19991102
  2. COUMADIN [Concomitant]
  3. ACETAMINOPHEN [Concomitant]
  4. CALCIUM [Concomitant]
  5. CHLORPROMAZINE [Concomitant]
  6. DALTEPARIN SODIUM [Concomitant]
  7. FOLIC ACID [Concomitant]
  8. FUROSEMIDE [Concomitant]
  9. LEVOTHYROXINE SODIUM [Concomitant]
  10. METOPROLOL [Concomitant]
  11. MULTI-VITAMINS [Concomitant]
  12. OMEPRAZOLE [Concomitant]
  13. QUETIAPINE [Concomitant]
  14. WARFARIN SODIUM [Concomitant]
  15. TYLENOL W/ CODEINE NO. 3 [Concomitant]
  16. METOCLOPRAMIDE [Concomitant]
  17. MORPHINE SULFATE [Concomitant]
  18. SERAX [Concomitant]
  19. ALBUTEROL SULFATE [Concomitant]
  20. FRAGMIN [Concomitant]

REACTIONS (7)
  - ANKLE FRACTURE [None]
  - CONVULSION [None]
  - FALL [None]
  - FEMUR FRACTURE [None]
  - FIBULA FRACTURE [None]
  - FRACTURE TREATMENT [None]
  - TIBIA FRACTURE [None]
